FAERS Safety Report 7458818-7 (Version None)
Quarter: 2011Q2

REPORT INFORMATION
  Report Type: 
  Country: None (occurrence: None)
  Receive Date: 20110504
  Receipt Date: 20110425
  Transmission Date: 20111010
  Serious: Yes (Hospitalization, Other)
  Sender: FDA-Public Use
  Company Number: US-ASTRAZENECA-2011SE22061

PATIENT
  Sex: Female
  Weight: 58.1 kg

DRUGS (10)
  1. LYRICA [Concomitant]
     Indication: PAIN
     Route: 048
  2. BUSPAR [Concomitant]
     Indication: ANXIETY
     Dosage: ONE AND HALF TABLET TWO TIMES A DAY
     Route: 048
  3. SEROQUEL XR [Suspect]
     Indication: SLEEP DISORDER
     Route: 048
  4. MOBIC [Concomitant]
     Indication: PAIN
     Route: 048
  5. BETAMETHASONE [Concomitant]
     Indication: RASH
     Dosage: 1 APPLICATION DAILY TO FACE
  6. VISTARIL [Concomitant]
     Indication: ANXIETY
     Route: 048
  7. PRAZOSIN HCL [Concomitant]
     Indication: SLEEP DISORDER
     Route: 048
  8. PRAZOSIN HCL [Concomitant]
     Indication: NIGHTMARE
     Route: 048
  9. CYMBALTA [Concomitant]
     Indication: DEPRESSION
     Route: 048
  10. SEROQUEL XR [Suspect]
     Indication: MOOD SWINGS
     Route: 048

REACTIONS (11)
  - PAIN [None]
  - ALCOHOLISM [None]
  - MOOD SWINGS [None]
  - DRUG INEFFECTIVE [None]
  - OFF LABEL USE [None]
  - GENERALISED ANXIETY DISORDER [None]
  - NIGHTMARE [None]
  - MAJOR DEPRESSION [None]
  - DEPRESSION [None]
  - ANXIETY [None]
  - SUICIDAL IDEATION [None]
